FAERS Safety Report 9377392 (Version 1)
Quarter: 2013Q3

REPORT INFORMATION
  Report Type: Spontaneous
  Country: DE (occurrence: DE)
  Receive Date: 20130701
  Receipt Date: 20130701
  Transmission Date: 20140515
  Serious: Yes (Other)
  Sender: FDA-Public Use
  Company Number: DE-009507513-1306DEU010898

PATIENT
  Age: 70 Year
  Sex: Male
  Weight: 78 kg

DRUGS (5)
  1. SIMVASTATIN [Suspect]
     Indication: HYPERCHOLESTEROLAEMIA
     Dosage: UNK
     Route: 048
     Dates: start: 2012, end: 20130325
  2. CARBIDOPA (+) LEVODOPA [Concomitant]
     Indication: PARKINSONISM
     Dosage: UNK
     Route: 048
     Dates: start: 1994
  3. AMANTADINE SULFATE [Concomitant]
     Indication: PARKINSONISM
     Dosage: 100 MG, QD
     Dates: end: 20130328
  4. TASMAR (TOLCAPONE) [Concomitant]
     Indication: PARKINSONISM
     Dosage: UNK
     Route: 048
  5. ROPINIROLE [Concomitant]
     Indication: PARKINSONISM
     Dosage: 8 MG, QD
     Route: 048
     Dates: end: 20130406

REACTIONS (2)
  - Paraparesis [Recovering/Resolving]
  - Myopathy [Recovering/Resolving]
